FAERS Safety Report 19295278 (Version 3)
Quarter: 2021Q3

REPORT INFORMATION
  Report Type: Spontaneous
  Country: US (occurrence: US)
  Receive Date: 20210524
  Receipt Date: 20210816
  Transmission Date: 20211014
  Serious: Yes (Hospitalization)
  Sender: FDA-Public Use
  Company Number: US-PARATEK PHARMACEUTICALS, INC.-2021PTK00071

PATIENT
  Age: 34 Year
  Sex: Female
  Weight: 96.15 kg

DRUGS (6)
  1. AMIKACIN. [Concomitant]
     Active Substance: AMIKACIN
  2. NUZYRA [Suspect]
     Active Substance: OMADACYCLINE
     Indication: PNEUMONIA
     Dosage: 300 MG, 1X/DAY
     Route: 048
     Dates: start: 20210809
  3. AZITHROMYCIN ANHYDROUS. [Concomitant]
     Active Substance: AZITHROMYCIN ANHYDROUS
  4. MULTIVITAMIN [Concomitant]
     Active Substance: VITAMINS
  5. NUZYRA [Suspect]
     Active Substance: OMADACYCLINE
     Indication: MYCOBACTERIAL INFECTION
     Dosage: 300 MG, 1X/DAY
     Route: 048
     Dates: start: 20200902, end: 2021
  6. ETHAMBUTOL [Concomitant]
     Active Substance: ETHAMBUTOL HYDROCHLORIDE

REACTIONS (3)
  - Haemoptysis [Recovered/Resolved]
  - Mycobacterial infection [Unknown]
  - Off label use [Not Recovered/Not Resolved]

NARRATIVE: CASE EVENT DATE: 20200902
